FAERS Safety Report 7058200-0 (Version None)
Quarter: 2010Q4

REPORT INFORMATION
  Report Type: 
  Country: None (occurrence: None)
  Receive Date: 20101022
  Receipt Date: 20101013
  Transmission Date: 20110411
  Serious: Yes (Congenital Anomaly)
  Sender: FDA-Public Use
  Company Number: AU-WATSON-2010-13799

PATIENT

DRUGS (1)
  1. CITALOPRAM HYDROBROMIDE [Suspect]
     Indication: DRUG EXPOSURE DURING PREGNANCY
     Dosage: UNK
     Route: 064

REACTIONS (6)
  - CONGENITAL ANOMALY [None]
  - PATENT DUCTUS ARTERIOSUS [None]
  - PREMATURE BABY [None]
  - RESUSCITATION [None]
  - SMALL FOR DATES BABY [None]
  - VESICOURETERIC REFLUX [None]
